APPROVED DRUG PRODUCT: CROMOLYN SODIUM
Active Ingredient: CROMOLYN SODIUM
Strength: 10MG/ML
Dosage Form/Route: SOLUTION;INHALATION
Application: A213658 | Product #001 | TE Code: AN
Applicant: MICRO LABS LTD
Approved: Apr 29, 2022 | RLD: No | RS: No | Type: RX